FAERS Safety Report 10542163 (Version 2)
Quarter: 2014Q4

REPORT INFORMATION
  Report Type: Spontaneous
  Country: AR (occurrence: AR)
  Receive Date: 20141024
  Receipt Date: 20141112
  Transmission Date: 20150529
  Serious: Yes (Hospitalization, Other)
  Sender: FDA-Public Use
  Company Number: AR-GILEAD-2014-0119121

PATIENT
  Age: 39 Year
  Sex: Female

DRUGS (2)
  1. VIREAD [Suspect]
     Active Substance: TENOFOVIR DISOPROXIL FUMARATE
     Indication: HIV INFECTION
     Route: 065
  2. METHYLMETHACRYLATE [Concomitant]
     Dosage: UNK
     Route: 050
     Dates: start: 2009

REACTIONS (2)
  - Renal impairment [Recovering/Resolving]
  - Nephrocalcinosis [Unknown]

NARRATIVE: CASE EVENT DATE: 201003
